FAERS Safety Report 24294562 (Version 1)
Quarter: 2024Q3

REPORT INFORMATION
  Report Type: Spontaneous
  Country: US (occurrence: US)
  Receive Date: 20240906
  Receipt Date: 20240906
  Transmission Date: 20241017
  Serious: No
  Sender: KYOWA
  Company Number: US-KYOWAKIRIN-2024KK020748

PATIENT

DRUGS (1)
  1. POTELIGEO [Suspect]
     Active Substance: MOGAMULIZUMAB-KPKC
     Indication: Cutaneous T-cell lymphoma
     Dosage: UNK, 1X/2 WEEKS
     Route: 042
     Dates: start: 201405

REACTIONS (1)
  - Weight decreased [Unknown]
